FAERS Safety Report 5585417-4 (Version None)
Quarter: 2008Q1

REPORT INFORMATION
  Report Type: 
  Country: None (occurrence: None)
  Receive Date: 20080109
  Receipt Date: 20071227
  Transmission Date: 20080703
  Serious: Yes (Other)
  Sender: FDA-Public Use
  Company Number: CN-GENENTECH-253441

PATIENT
  Sex: Male
  Weight: 57 kg

DRUGS (5)
  1. BEVACIZUMAB [Suspect]
     Indication: NON-SMALL CELL LUNG CANCER
     Dosage: 855 MG, Q3W
     Route: 042
     Dates: start: 20070911, end: 20071030
  2. PACLITAXEL [Suspect]
     Indication: NON-SMALL CELL LUNG CANCER
     Dosage: 282 MG, Q3W
     Route: 042
     Dates: start: 20070911, end: 20071030
  3. CARBOPLATIN [Suspect]
     Indication: NON-SMALL CELL LUNG CANCER
     Dosage: 749 MG, Q3W
     Route: 042
     Dates: start: 20070911, end: 20071030
  4. ERLOTINIB [Concomitant]
     Indication: DRUG USE FOR UNKNOWN INDICATION
     Dates: start: 20071121, end: 20071206
  5. FRAXIPARINE [Concomitant]
     Indication: DRUG USE FOR UNKNOWN INDICATION
     Dates: start: 20071124, end: 20071210

REACTIONS (1)
  - RESPIRATORY FAILURE [None]
